FAERS Safety Report 22889950 (Version 3)
Quarter: 2023Q4

REPORT INFORMATION
  Report Type: Report from Study
  Country: KR (occurrence: KR)
  Receive Date: 20230831
  Receipt Date: 20231109
  Transmission Date: 20240109
  Serious: Yes (Hospitalization)
  Sender: FDA-Public Use
  Company Number: KR-PFIZER INC-202300055336

PATIENT
  Age: 67 Year
  Sex: Female
  Weight: 63.5 kg

DRUGS (14)
  1. ELRANATAMAB [Suspect]
     Active Substance: ELRANATAMAB
     Indication: Plasma cell myeloma
     Dosage: 12 MG, EVERY WEEK
     Route: 058
     Dates: start: 20220715, end: 20220715
  2. ELRANATAMAB [Suspect]
     Active Substance: ELRANATAMAB
     Dosage: 32 MG, EVERY WEEK
     Route: 058
     Dates: start: 20220718, end: 20220718
  3. ELRANATAMAB [Suspect]
     Active Substance: ELRANATAMAB
     Dosage: 76 MG, EVERY WEEK
     Route: 058
     Dates: start: 20220725, end: 20230103
  4. ELRANATAMAB [Suspect]
     Active Substance: ELRANATAMAB
     Dosage: 76 MG, EVERY 2 WEEKS
     Route: 058
     Dates: start: 20230110, end: 20230124
  5. DEXAMETHASONE [Suspect]
     Active Substance: DEXAMETHASONE
     Indication: Plasma cell myeloma
     Dosage: 20 MG, ONCE, INJ
     Route: 042
     Dates: start: 20220715, end: 20220725
  6. ACETAMINOPHEN [Suspect]
     Active Substance: ACETAMINOPHEN
     Indication: Plasma cell myeloma
     Dosage: 650 MG, ONCE, TYLENOL 8HR ER TABLET (ACETAMINOPHEN)
     Route: 048
     Dates: start: 20220715, end: 20220725
  7. PENIRAMIN [Concomitant]
     Indication: Plasma cell myeloma
     Dosage: 4 MG, ONCE, 4 MG/2 ML
     Route: 042
     Dates: start: 20220715, end: 20220725
  8. LYRICA [Concomitant]
     Active Substance: PREGABALIN
     Indication: Peripheral sensory neuropathy
     Dosage: 150 MG, 2X/DAY
     Route: 048
     Dates: start: 20220913
  9. VACROVIR [ACICLOVIR] [Concomitant]
     Indication: Infection prophylaxis
     Dosage: 250 MG, 2X/DAY
     Route: 048
     Dates: start: 20220830, end: 20230503
  10. SULFAMETHOXAZOLE\TRIMETHOPRIM [Concomitant]
     Active Substance: SULFAMETHOXAZOLE\TRIMETHOPRIM
     Indication: Infection prophylaxis
     Dosage: 1 TABLET, 1X/DAY
     Route: 048
     Dates: start: 20220830
  11. NORVASC [Concomitant]
     Active Substance: AMLODIPINE BESYLATE
     Indication: Hypertension
     Dosage: 1 TABLET, 1X/DAY
     Route: 048
     Dates: start: 2006, end: 20231001
  12. PRAVASTATIN SODIUM [Concomitant]
     Active Substance: PRAVASTATIN SODIUM
     Indication: Hyperlipidaemia
     Dosage: 1 TABLET, 1X/DAY
     Route: 048
     Dates: start: 2012
  13. OXYCODONE HYDROCHLORIDE [Concomitant]
     Active Substance: OXYCODONE HYDROCHLORIDE
     Indication: Cancer pain
     Dosage: 1 TABLET, 3X/DAY
     Route: 048
     Dates: start: 20220823, end: 20221018
  14. LEVOFLOXACIN [Concomitant]
     Active Substance: LEVOFLOXACIN
     Indication: Infection prophylaxis
     Dosage: 1 TABLET, 1X/DAY
     Route: 048
     Dates: start: 20220830

REACTIONS (1)
  - Cytomegalovirus infection reactivation [Recovered/Resolved]

NARRATIVE: CASE EVENT DATE: 20230110
